FAERS Safety Report 17440247 (Version 1)
Quarter: 2020Q1

REPORT INFORMATION
  Report Type: Spontaneous
  Country: US (occurrence: US)
  Receive Date: 20200205
  Receipt Date: 20200205
  Transmission Date: 20200409
  Serious: No
  Sender: FDA-Public Use
  Company Number: None

PATIENT
  Age: 17 Year
  Sex: Female

DRUGS (4)
  1. GLEOSTINE [Suspect]
     Active Substance: LOMUSTINE
     Route: 048
  2. ENALAPRIL [Concomitant]
     Active Substance: ENALAPRIL
  3. VIMPAT [Concomitant]
     Active Substance: LACOSAMIDE
  4. TABLOID [Suspect]
     Active Substance: THIOGUANINE
     Indication: BRAIN NEOPLASM MALIGNANT
     Route: 048

REACTIONS (3)
  - Platelet count decreased [None]
  - White blood cell disorder [None]
  - Haemoglobin decreased [None]

NARRATIVE: CASE EVENT DATE: 20200204
